FAERS Safety Report 7103081-X (Version None)
Quarter: 2010Q4

REPORT INFORMATION
  Report Type: 
  Country: None (occurrence: None)
  Receive Date: 20101115
  Receipt Date: 20100714
  Transmission Date: 20110411
  Serious: Yes (Other)
  Sender: FDA-Public Use
  Company Number: US-BAYER-200940506NA

PATIENT
  Age: 24 Year
  Sex: Female
  Weight: 59 kg

DRUGS (2)
  1. YASMIN [Suspect]
     Indication: CONTRACEPTION
     Route: 048
     Dates: start: 20050101, end: 20100101
  2. YAZ [Suspect]
     Indication: CONTRACEPTION
     Route: 048
     Dates: start: 20050101, end: 20100101

REACTIONS (6)
  - ABNORMAL FAECES [None]
  - BILIARY DYSKINESIA [None]
  - CHOLECYSTITIS [None]
  - DYSPEPSIA [None]
  - NAUSEA [None]
  - PAIN [None]
